FAERS Safety Report 23934114 (Version 6)
Quarter: 2024Q4

REPORT INFORMATION
  Report Type: Report from Study
  Country: DE (occurrence: DE)
  Receive Date: 20240603
  Receipt Date: 20241004
  Transmission Date: 20250115
  Serious: Yes (Life-Threatening, Hospitalization, Other)
  Sender: PFIZER
  Company Number: DE-PFM-2024-01801

PATIENT
  Age: 70 Year
  Sex: Male

DRUGS (16)
  1. ENCORAFENIB [Suspect]
     Active Substance: ENCORAFENIB
     Indication: Malignant melanoma
     Dosage: 450 MG, QD (1/DAY)
     Route: 048
     Dates: start: 20230320, end: 20231114
  2. ENCORAFENIB [Suspect]
     Active Substance: ENCORAFENIB
     Dosage: UNK
     Route: 065
     Dates: end: 20231124
  3. ENCORAFENIB [Suspect]
     Active Substance: ENCORAFENIB
     Dosage: 300 MG, QD (1/DAY)
     Route: 048
     Dates: start: 20231208
  4. ENCORAFENIB [Suspect]
     Active Substance: ENCORAFENIB
     Dosage: 450 MG, QD (1/DAY)
     Route: 048
  5. ENCORAFENIB [Suspect]
     Active Substance: ENCORAFENIB
     Dosage: 75 MG, QID (4/DAY)
     Route: 065
  6. ENCORAFENIB [Suspect]
     Active Substance: ENCORAFENIB
     Dosage: 300 MG, QD (1/DAY)
     Route: 065
     Dates: end: 20240311
  7. BINIMETINIB [Suspect]
     Active Substance: BINIMETINIB
     Indication: Malignant melanoma
     Dosage: 45 MG, BID (2/DAY)
     Route: 048
     Dates: start: 20230320
  8. BINIMETINIB [Suspect]
     Active Substance: BINIMETINIB
     Dosage: 45 MG, BID (2/DAY)
     Route: 048
     Dates: start: 20230808, end: 20231124
  9. BINIMETINIB [Suspect]
     Active Substance: BINIMETINIB
     Dosage: 30 MG, BID (2/DAY)
     Route: 048
     Dates: start: 20231208
  10. BINIMETINIB [Suspect]
     Active Substance: BINIMETINIB
     Dosage: 30 MG, BID (2/DAY)
     Route: 065
     Dates: end: 20240311
  11. ASPIRIN [Concomitant]
     Active Substance: ASPIRIN
     Dosage: UNK
     Route: 065
     Dates: start: 2008
  12. RAMIPRIL [Concomitant]
     Active Substance: RAMIPRIL
     Dosage: UNK
     Route: 065
     Dates: start: 2008
  13. AMLODIPINE [Concomitant]
     Active Substance: AMLODIPINE BESYLATE
     Dosage: UNK
     Route: 065
     Dates: start: 2008
  14. ATORVASTATIN [Concomitant]
     Active Substance: ATORVASTATIN
     Dosage: UNK
     Route: 065
     Dates: start: 2008
  15. METOPROLOL [Concomitant]
     Active Substance: METOPROLOL
     Dosage: UNK
     Route: 065
  16. PANTOPRAZOLE SODIUM [Concomitant]
     Active Substance: PANTOPRAZOLE SODIUM
     Indication: Prophylaxis
     Dosage: UNK
     Route: 065
     Dates: start: 2019

REACTIONS (3)
  - Cerebrovascular accident [Recovered/Resolved with Sequelae]
  - Polyneuropathy [Recovered/Resolved]
  - Hyponatraemia [Recovered/Resolved]

NARRATIVE: CASE EVENT DATE: 20240311
